FAERS Safety Report 6491657-2 (Version None)
Quarter: 2009Q4

REPORT INFORMATION
  Report Type: 
  Country: None (occurrence: None)
  Receive Date: 20091211
  Receipt Date: 20091203
  Transmission Date: 20100525
  Serious: Yes (Hospitalization, Other)
  Sender: FDA-Public Use
  Company Number: GB-MERCK-0910GBR00011

PATIENT
  Age: 42 Year
  Sex: Female

DRUGS (6)
  1. MAXALT [Suspect]
     Route: 048
  2. ACETAMINOPHEN AND PROPOXYPHENE HYDROCHLORIDE [Suspect]
     Route: 065
  3. DICLOFENAC [Suspect]
     Route: 065
  4. METFORMIN [Suspect]
     Route: 065
  5. NORTRIPTYLINE [Suspect]
     Route: 065
  6. TEMAZEPAM [Suspect]
     Route: 065

REACTIONS (7)
  - DIARRHOEA [None]
  - DUODENAL ULCER [None]
  - GASTRITIS [None]
  - GASTROINTESTINAL DISORDER [None]
  - REFLUX OESOPHAGITIS [None]
  - VOMITING [None]
  - WEIGHT DECREASED [None]
